FAERS Safety Report 6694871-6 (Version None)
Quarter: 2010Q2

REPORT INFORMATION
  Report Type: 
  Country: None (occurrence: None)
  Receive Date: 20100420
  Receipt Date: 20100408
  Transmission Date: 20101027
  Serious: Yes (Other)
  Sender: FDA-Public Use
  Company Number: 7000995

PATIENT
  Sex: Female

DRUGS (3)
  1. REBIF [Suspect]
     Indication: RELAPSING-REMITTING MULTIPLE SCLEROSIS
     Dosage: 44 MCG, 3 IN 1 WK;
     Dates: start: 20081201, end: 20100329
  2. ATACAND [Concomitant]
  3. PHENOBARBITAL TAB [Concomitant]

REACTIONS (2)
  - BLOOD CREATININE ABNORMAL [None]
  - RENAL ATROPHY [None]
